FAERS Safety Report 4791010-3 (Version None)
Quarter: 2005Q4

REPORT INFORMATION
  Report Type: 
  Country: None (occurrence: None)
  Receive Date: 20051005
  Receipt Date: 20050923
  Transmission Date: 20060501
  Serious: Yes (Hospitalization)
  Sender: FDA-Public Use
  Company Number: 2005PV001262

PATIENT
  Age: 57 Year
  Sex: Female
  Weight: 138.3471 kg

DRUGS (18)
  1. BYETTA [Suspect]
     Indication: DIABETES MELLITUS NON-INSULIN-DEPENDENT
     Dosage: SEE IMAGE
     Route: 058
     Dates: start: 20050712, end: 20050807
  2. BYETTA [Suspect]
     Indication: DIABETES MELLITUS NON-INSULIN-DEPENDENT
     Dosage: SEE IMAGE
     Route: 058
     Dates: start: 20050808, end: 20050816
  3. DIOVAN [Suspect]
     Indication: DRUG USE FOR UNKNOWN INDICATION
     Dosage: 320 MG; QD
     Dates: end: 20050829
  4. ULTRAM [Suspect]
     Indication: PAIN
     Dosage: 50 MG; Q4H
     Dates: end: 20050905
  5. GLUCOPHAGE [Concomitant]
  6. SANDOSTATIN [Concomitant]
  7. NORVASC [Concomitant]
  8. BUMEX [Concomitant]
  9. ALDACTONE [Concomitant]
  10. CLONIDINE [Concomitant]
  11. ALLEGRA [Concomitant]
  12. ZOLOFT [Concomitant]
  13. COREG [Concomitant]
  14. ASPIRIN [Concomitant]
  15. AVANDIA [Concomitant]
  16. CALCIUM GLUCONATE [Concomitant]
  17. CATAPRES [Concomitant]
  18. VITAMINS [Concomitant]

REACTIONS (10)
  - ANGIONEUROTIC OEDEMA [None]
  - ARTHRALGIA [None]
  - CONTUSION [None]
  - DIZZINESS [None]
  - DYSPHAGIA [None]
  - GLOSSODYNIA [None]
  - HYPERSENSITIVITY [None]
  - SWELLING FACE [None]
  - SWOLLEN TONGUE [None]
  - URTICARIA [None]
